FAERS Safety Report 24346240 (Version 1)
Quarter: 2024Q3

REPORT INFORMATION
  Report Type: Report from Study
  Country: US (occurrence: US)
  Receive Date: 20240921
  Receipt Date: 20240921
  Transmission Date: 20241017
  Serious: Yes (Congenital Anomaly)
  Sender: HETERO
  Company Number: US-HETERO-HET2024US03114

PATIENT
  Sex: Female
  Weight: 3.1 kg

DRUGS (3)
  1. DOLUTEGRAVIR [Suspect]
     Active Substance: DOLUTEGRAVIR
     Indication: HIV infection
     Dosage: 1 DOSAGE FORM(TABLET/CAPSULE), 1 COURSE
     Route: 064
     Dates: start: 20231017
  2. EMTRICITABINE\TENOFOVIR [Suspect]
     Active Substance: EMTRICITABINE\TENOFOVIR
     Indication: HIV infection
     Dosage: 1 DOSAGE FORM(TABLET/CAPSULE), 1 COURSE
     Route: 064
     Dates: start: 20231017
  3. BICTEGRAVIR\EMTRICITABINE\TENOFOVIR ALAFENAMIDE [Suspect]
     Active Substance: BICTEGRAVIR\EMTRICITABINE\TENOFOVIR ALAFENAMIDE
     Indication: HIV infection
     Dosage: 1 DOSAGE FORM(TABLET/CAPSULE), 1 COURSE
     Route: 064
     Dates: end: 20231017

REACTIONS (3)
  - Exomphalos [Unknown]
  - Pulmonary hypertension [Unknown]
  - Foetal exposure during pregnancy [Unknown]
